FAERS Safety Report 19646593 (Version 5)
Quarter: 2021Q3

REPORT INFORMATION
  Report Type: Spontaneous
  Country: US (occurrence: US)
  Receive Date: 20210802
  Receipt Date: 20210907
  Transmission Date: 20211014
  Serious: Yes (Disabling, Other)
  Sender: FDA-Public Use
  Company Number: US-PFIZER INC-202100952555

PATIENT
  Age: 70 Year
  Sex: Female
  Weight: 60 kg

DRUGS (2)
  1. METFORMIN [Concomitant]
     Active Substance: METFORMIN HYDROCHLORIDE
     Dosage: UNK
     Dates: start: 2019
  2. ATORVASTATIN CALCIUM. [Suspect]
     Active Substance: ATORVASTATIN CALCIUM
     Indication: BLOOD CHOLESTEROL
     Dosage: UNK
     Dates: start: 202012, end: 202103

REACTIONS (7)
  - Muscle atrophy [Unknown]
  - Hypoaesthesia [Not Recovered/Not Resolved]
  - Polymyositis [Not Recovered/Not Resolved]
  - Myopathy [Unknown]
  - Loss of personal independence in daily activities [Not Recovered/Not Resolved]
  - Fatigue [Not Recovered/Not Resolved]
  - Muscular weakness [Not Recovered/Not Resolved]

NARRATIVE: CASE EVENT DATE: 202012
